FAERS Safety Report 5603956-4 (Version None)
Quarter: 2008Q1

REPORT INFORMATION
  Report Type: 
  Country: None (occurrence: None)
  Receive Date: 20080123
  Receipt Date: 20080114
  Transmission Date: 20080703
  Serious: Yes (Death)
  Sender: FDA-Public Use
  Company Number: B0503078A

PATIENT
  Age: 34 Year
  Sex: Female

DRUGS (8)
  1. BUPROPION HCL [Suspect]
     Dosage: ORAL
     Route: 048
  2. ETHANOL (FORMULATION UNKNOWN) (ALCOHOL) [Suspect]
     Dosage: ORAL
     Route: 048
  3. VENLAFAXINE HCL [Suspect]
     Dosage: ORAL
     Route: 048
  4. CLOMIPHENE CITRATE [Suspect]
     Dosage: ORAL
     Route: 048
  5. NAPROXEN [Suspect]
     Dosage: ORAL
     Route: 048
  6. DICLOFENAC SODIUM [Suspect]
     Dosage: ORAL
     Route: 048
  7. COLD + COUGH MEDICATION (FORMULATION UNKNOWN) (COLD + COUGH MEDICATION [Suspect]
     Dosage: ORAL
     Route: 048
  8. PSEUDOEPHEDRINE HCL [Suspect]
     Dosage: ORAL
     Route: 048

REACTIONS (2)
  - CARDIO-RESPIRATORY ARREST [None]
  - COMPLETED SUICIDE [None]
